FAERS Safety Report 5206545-9 (Version None)
Quarter: 2006Q4

REPORT INFORMATION
  Report Type: 
  Country: None (occurrence: None)
  Receive Date: 20061026
  Receipt Date: 20060831
  Transmission Date: 20070319
  Serious: No
  Sender: FDA-Public Use
  Company Number: 2006107159

PATIENT
  Age: 44 Year
  Sex: Female
  Weight: 72.5755 kg

DRUGS (3)
  1. LYRICA [Suspect]
     Indication: NERVE COMPRESSION
     Dosage: 150 MG (75 MG, 2 IN 1 D)
     Dates: start: 20060101
  2. NORCO [Concomitant]
  3. CIPROFLOXACIN [Concomitant]

REACTIONS (4)
  - OEDEMA PERIPHERAL [None]
  - PAIN [None]
  - SLEEP DISORDER [None]
  - SOMNOLENCE [None]
